FAERS Safety Report 12526792 (Version 1)
Quarter: 2016Q3

REPORT INFORMATION
  Report Type: Spontaneous
  Country: US (occurrence: US)
  Receive Date: 20160705
  Receipt Date: 20160705
  Transmission Date: 20161109
  Serious: No
  Sender: FDA-Public Use
  Company Number: US-PFIZER INC-2016309872

PATIENT
  Age: 55 Year
  Sex: Male
  Weight: 81.65 kg

DRUGS (2)
  1. GLUTEN [Suspect]
     Active Substance: WHEAT GLUTEN
     Dosage: UNK
  2. PRISTIQ EXTENDED-RELEASE [Suspect]
     Active Substance: DESVENLAFAXINE SUCCINATE
     Indication: DEPRESSION
     Dosage: 50 MG, DAILY
     Route: 048
     Dates: start: 20160617, end: 20160617

REACTIONS (8)
  - Urticaria [Unknown]
  - Erythema [Unknown]
  - Feeling hot [Unknown]
  - Agitation [Recovered/Resolved]
  - Pruritus [Unknown]
  - Expired product administered [Unknown]
  - Blood pressure increased [Recovered/Resolved]
  - Irritability [Recovered/Resolved]

NARRATIVE: CASE EVENT DATE: 20160618
